FAERS Safety Report 6622369-X (Version None)
Quarter: 2010Q1

REPORT INFORMATION
  Report Type: 
  Country: None (occurrence: None)
  Receive Date: 20100310
  Receipt Date: 20100125
  Transmission Date: 20100710
  Serious: No
  Sender: FDA-Public Use
  Company Number: US-BIOGENIDEC-2010BI002621

PATIENT
  Age: 57 Year
  Sex: Male

DRUGS (1)
  1. AVONEX [Suspect]
     Indication: MULTIPLE SCLEROSIS
     Route: 030
     Dates: start: 20020415

REACTIONS (6)
  - ASTHENIA [None]
  - EYE PAIN [None]
  - HERNIA [None]
  - HYPOAESTHESIA [None]
  - POOR QUALITY SLEEP [None]
  - TREMOR [None]
